FAERS Safety Report 5780118-1 (Version None)
Quarter: 2008Q2

REPORT INFORMATION
  Report Type: 
  Country: None (occurrence: None)
  Receive Date: 20080620
  Receipt Date: 20080611
  Transmission Date: 20081010
  Serious: Yes (Hospitalization)
  Sender: FDA-Public Use
  Company Number: PL-JNJFOC-20070703083

PATIENT
  Sex: Female

DRUGS (3)
  1. DOXORUBICIN HCL [Suspect]
     Dosage: 50 MG/M2
     Route: 042
  2. DOXORUBICIN HCL [Suspect]
     Indication: OVARIAN CANCER
     Dosage: 50 MG/M2
     Route: 042
  3. YONDELIS [Suspect]
     Indication: OVARIAN CANCER
     Route: 042

REACTIONS (2)
  - ANAEMIA [None]
  - HYPOALBUMINAEMIA [None]
